FAERS Safety Report 26133428 (Version 1)
Quarter: 2025Q4

REPORT INFORMATION
  Report Type: Spontaneous
  Country: US (occurrence: US)
  Receive Date: 20251209
  Receipt Date: 20251209
  Transmission Date: 20260118
  Serious: No
  Sender: Kenvue
  Company Number: US-KENVUE-20251200895

PATIENT
  Sex: Female

DRUGS (1)
  1. TYLENOL 8 HR ARTHRITIS PAIN [Suspect]
     Active Substance: ACETAMINOPHEN
     Indication: Product used for unknown indication
     Dosage: 4 DOSAGE FORM (ACCIDENTALLY TOOK 2 650MG OF EXTENDED RELIEF TYLENOL AT 09:00, AND TOOK 2 AGAIN AT 01:00)
     Route: 065

REACTIONS (1)
  - Extra dose administered [Unknown]
